FAERS Safety Report 7200305-5 (Version None)
Quarter: 2010Q4

REPORT INFORMATION
  Report Type: 
  Country: None (occurrence: None)
  Receive Date: 20101228
  Receipt Date: 20101220
  Transmission Date: 20110411
  Serious: Yes (Other)
  Sender: FDA-Public Use
  Company Number: B0690338A

PATIENT
  Age: 20 Year
  Sex: Male

DRUGS (2)
  1. LAMICTAL [Suspect]
     Indication: EPILEPSY
     Route: 048
  2. TRILEPTAL [Suspect]
     Indication: EPILEPSY
     Route: 065

REACTIONS (2)
  - ULNA FRACTURE [None]
  - VITAMIN D DECREASED [None]
